FAERS Safety Report 8094011-5 (Version None)
Quarter: 2012Q1

REPORT INFORMATION
  Report Type: 
  Country: None (occurrence: None)
  Receive Date: 20120131
  Receipt Date: 20120125
  Transmission Date: 20120608
  Serious: Yes (Death, Other)
  Sender: FDA-Public Use
  Company Number: PHEH2010US03425

PATIENT
  Sex: Female

DRUGS (46)
  1. CALCIUM CARBONATE [Concomitant]
     Dosage: 1 DF, QD
  2. PREDNISONE TAB [Concomitant]
  3. HUMALOG [Concomitant]
  4. NORCO [Concomitant]
  5. ACETAMINOPHEN [Concomitant]
  6. AUGMENTIN '125' [Concomitant]
  7. ASPIRIN [Concomitant]
     Dosage: 1 DF, QD
  8. MELPHALAN HYDROCHLORIDE [Concomitant]
  9. DECADRON [Concomitant]
     Dosage: 20 MG, QW
  10. ESOMEPRAZOLE MAGNESIUM [Concomitant]
     Dosage: 40 MG, QD
     Route: 048
  11. ACETAMINOPHEN [Concomitant]
  12. AREDIA [Suspect]
     Indication: MULTIPLE MYELOMA
     Dosage: 90 MG, QMO
     Route: 042
     Dates: start: 20010101, end: 20070801
  13. ZOMETA [Suspect]
     Dosage: 4 MG, QMO
     Route: 042
     Dates: start: 20010101, end: 20070801
  14. CARDIZEM [Concomitant]
  15. ACCUPRIL [Concomitant]
     Dosage: 40 MG,
  16. LEXAPRO [Concomitant]
     Dosage: 10 MG, QD
     Route: 048
  17. LANTUS [Concomitant]
     Dosage: 40 U, QD
  18. VELCADE [Concomitant]
  19. ACTOS [Concomitant]
  20. ZOCOR [Concomitant]
  21. STARLIX [Concomitant]
  22. AVANDIA [Concomitant]
     Dosage: 10 MG, BID
  23. INSULIN [Concomitant]
  24. VICODIN [Concomitant]
  25. LISINOPRIL [Concomitant]
     Dosage: 10 MG, QD
     Route: 048
  26. ARANESP [Concomitant]
  27. AMLODIPINE [Concomitant]
     Dosage: 5 MG, QD
     Route: 048
  28. CHEMOTHERAPEUTICS [Concomitant]
  29. PROCRIT [Concomitant]
     Dosage: 40000 U,
  30. MEGACE [Concomitant]
  31. REGLAN [Concomitant]
  32. STEROIDS NOS [Concomitant]
  33. PHENOBARBITAL TAB [Concomitant]
  34. DARVOCET-N 50 [Concomitant]
  35. HEPARIN SODIUM [Concomitant]
  36. WARFARIN SODIUM [Concomitant]
     Route: 048
  37. KEPPRA [Concomitant]
  38. ATIVAN [Concomitant]
  39. TIMENTIN [Concomitant]
  40. COLESTID [Concomitant]
  41. ALAVERT [Concomitant]
  42. ASPIRIN [Concomitant]
  43. VITAMIN E [Concomitant]
     Dosage: 1 DF, QD
  44. GLYCOLAX [Concomitant]
  45. NEXIUM [Concomitant]
     Dosage: 40 MG, QD
  46. LEVETIRACETAM [Concomitant]

REACTIONS (100)
  - DISABILITY [None]
  - DYSPNOEA [None]
  - ARTHRALGIA [None]
  - CORONARY ARTERY DISEASE [None]
  - VOMITING [None]
  - PARAESTHESIA [None]
  - ATELECTASIS [None]
  - COLITIS [None]
  - CONSTIPATION [None]
  - OROANTRAL FISTULA [None]
  - OSTEONECROSIS OF JAW [None]
  - RENAL IMPAIRMENT [None]
  - BONE MARROW FAILURE [None]
  - ASTHENIA [None]
  - BREATH ODOUR [None]
  - GASTRITIS [None]
  - IMPAIRED GASTRIC EMPTYING [None]
  - ABDOMINAL PAIN [None]
  - SYNCOPE [None]
  - OSTEOPENIA [None]
  - KYPHOSIS [None]
  - TOOTH LOSS [None]
  - DERMOID CYST [None]
  - INJURY [None]
  - COUGH [None]
  - DIABETES MELLITUS [None]
  - EATING DISORDER [None]
  - ARTERIOSCLEROSIS [None]
  - OSTEOARTHRITIS [None]
  - PANCYTOPENIA [None]
  - HYPERCHOLESTEROLAEMIA [None]
  - INFECTION [None]
  - CHOLECYSTITIS [None]
  - RESPIRATORY FAILURE [None]
  - RENAL FAILURE CHRONIC [None]
  - OBESITY [None]
  - GOITRE [None]
  - HYPOTHYROIDISM [None]
  - HYPERLIPIDAEMIA [None]
  - RESPIRATORY TRACT CONGESTION [None]
  - ACROCHORDON [None]
  - IMPAIRED HEALING [None]
  - OSTEOLYSIS [None]
  - BACK PAIN [None]
  - FRACTURED SACRUM [None]
  - HYPOGAMMAGLOBULINAEMIA [None]
  - BRONCHITIS [None]
  - CONVULSION [None]
  - CHEST PAIN [None]
  - HIATUS HERNIA [None]
  - AORTIC CALCIFICATION [None]
  - INTERVERTEBRAL DISC SPACE NARROWING [None]
  - SPINAL OSTEOARTHRITIS [None]
  - OEDEMA PERIPHERAL [None]
  - MYALGIA [None]
  - NECK PAIN [None]
  - DEATH [None]
  - PROTEINURIA [None]
  - PNEUMONIA [None]
  - DIARRHOEA [None]
  - WEIGHT DECREASED [None]
  - RASH MACULO-PAPULAR [None]
  - PERICARDIAL EFFUSION [None]
  - DIABETIC RETINOPATHY [None]
  - SINUSITIS [None]
  - DEEP VEIN THROMBOSIS [None]
  - MASTICATION DISORDER [None]
  - ANHEDONIA [None]
  - BONE DISORDER [None]
  - ANAEMIA [None]
  - NEURALGIA [None]
  - MENTAL STATUS CHANGES [None]
  - BURSITIS [None]
  - HYPOAESTHESIA [None]
  - INTERVERTEBRAL DISC DEGENERATION [None]
  - CAROTID ARTERY STENOSIS [None]
  - SWELLING [None]
  - EXPOSED BONE IN JAW [None]
  - CATARACT [None]
  - HAIR FOLLICLE TUMOUR BENIGN [None]
  - PAIN [None]
  - PATHOLOGICAL FRACTURE [None]
  - SINUS DISORDER [None]
  - GROIN PAIN [None]
  - HYPERTENSION [None]
  - GASTROINTESTINAL PAIN [None]
  - HYPOVENTILATION [None]
  - ANXIETY [None]
  - MULTIPLE MYELOMA [None]
  - OSTEOPOROSIS [None]
  - CARDIAC DISORDER [None]
  - SLEEP DISORDER [None]
  - BONE NEOPLASM [None]
  - EXOSTOSIS [None]
  - CHRONIC OBSTRUCTIVE PULMONARY DISEASE [None]
  - GASTROINTESTINAL HAEMORRHAGE [None]
  - RHINITIS ALLERGIC [None]
  - URINARY INCONTINENCE [None]
  - NEUROPATHY PERIPHERAL [None]
  - CHONDROCALCINOSIS [None]
